FAERS Safety Report 21949579 (Version 1)
Quarter: 2023Q1

REPORT INFORMATION
  Report Type: Spontaneous
  Country: US (occurrence: US)
  Receive Date: 20230203
  Receipt Date: 20230203
  Transmission Date: 20230418
  Serious: No
  Sender: FDA-Public Use
  Company Number: US-AMGEN-USASP2023015216

PATIENT

DRUGS (2)
  1. XGEVA [Suspect]
     Active Substance: DENOSUMAB
     Indication: Breast cancer metastatic
     Route: 065
  2. IBRANCE [Suspect]
     Active Substance: PALBOCICLIB
     Indication: Breast cancer metastatic
     Dosage: UNK
     Route: 065

REACTIONS (10)
  - Pain in jaw [Recovering/Resolving]
  - Immune system disorder [Unknown]
  - Ear pain [Unknown]
  - Migraine [Unknown]
  - Sinus pain [Unknown]
  - Glossodynia [Unknown]
  - Oropharyngeal pain [Unknown]
  - Jaw disorder [Recovering/Resolving]
  - Exostosis of jaw [Unknown]
  - Toothache [Unknown]

NARRATIVE: CASE EVENT DATE: 20220101
